FAERS Safety Report 14820858 (Version 1)
Quarter: 2018Q2

REPORT INFORMATION
  Report Type: Spontaneous
  Country: US (occurrence: US)
  Receive Date: 20180403
  Receipt Date: 20180403
  Transmission Date: 20180711
  Serious: Yes (Death)
  Sender: FDA-Public Use
  Company Number: None

PATIENT
  Sex: Female

DRUGS (14)
  1. EPOGEN [Concomitant]
     Active Substance: ERYTHROPOIETIN
  2. TORSEMIDE. [Concomitant]
     Active Substance: TORSEMIDE
  3. METOPROL SUC [Concomitant]
  4. CLONIDINE. [Concomitant]
     Active Substance: CLONIDINE
  5. MINOXIDIL. [Concomitant]
     Active Substance: MINOXIDIL
  6. SANDIMMUNE [Concomitant]
     Active Substance: CYCLOSPORINE
  7. VITAMIN D [Concomitant]
     Active Substance: CHOLECALCIFEROL
  8. PREDNISONE. [Concomitant]
     Active Substance: PREDNISONE
  9. HYDRALAZINE [Concomitant]
     Active Substance: HYDRALAZINE HYDROCHLORIDE
  10. EPLERENONE. [Concomitant]
     Active Substance: EPLERENONE
  11. PROCRIT [Suspect]
     Active Substance: ERYTHROPOIETIN
     Indication: RENAL TRANSPLANT
     Route: 042
     Dates: start: 20170804
  12. CALCITRIOL. [Concomitant]
     Active Substance: CALCITRIOL
  13. CYCLOSPORINE. [Concomitant]
     Active Substance: CYCLOSPORINE
  14. LOSARTAN. [Concomitant]
     Active Substance: LOSARTAN

REACTIONS (1)
  - Death [None]
